FAERS Safety Report 18823414 (Version 1)
Quarter: 2021Q1

REPORT INFORMATION
  Report Type: Spontaneous
  Country: US (occurrence: US)
  Receive Date: 20210202
  Receipt Date: 20210202
  Transmission Date: 20210419
  Serious: No
  Sender: FDA-Public Use
  Company Number: US-ELI_LILLY_AND_COMPANY-US202101013005

PATIENT
  Age: 73 Year
  Sex: Female

DRUGS (6)
  1. MECLIZINE [Suspect]
     Active Substance: MECLIZINE HYDROCHLORIDE
     Indication: FATIGUE
     Dosage: UNK, UNKNOWN
     Route: 065
     Dates: start: 20210124
  2. MUCINEX [Concomitant]
     Active Substance: GUAIFENESIN
     Indication: COVID-19
     Dosage: UNK, UNKNOWN
     Route: 065
  3. SUDAFED [Concomitant]
     Active Substance: PSEUDOEPHEDRINE HYDROCHLORIDE
     Indication: COVID-19
     Dosage: UNK, UNKNOWN
     Route: 065
  4. BAMLANIVIMAB 700MG [Suspect]
     Active Substance: BAMLANIVIMAB
     Indication: COVID-19
     Dosage: UNK UNK, SINGLE
     Route: 042
     Dates: start: 20201230, end: 20201230
  5. PREDNISONE. [Suspect]
     Active Substance: PREDNISONE
     Indication: COVID-19
     Dosage: UNK, UNKNOWN
     Route: 065
  6. FASENRA [Concomitant]
     Active Substance: BENRALIZUMAB
     Indication: ASTHMA
     Dosage: UNK, EVERY 8 WEEKS
     Route: 065

REACTIONS (4)
  - Malaise [Recovering/Resolving]
  - Fatigue [Recovering/Resolving]
  - Balance disorder [Recovering/Resolving]
  - Somnolence [Recovering/Resolving]

NARRATIVE: CASE EVENT DATE: 20210124
